FAERS Safety Report 7476285-4 (Version None)
Quarter: 2011Q2

REPORT INFORMATION
  Report Type: 
  Country: None (occurrence: None)
  Receive Date: 20110512
  Receipt Date: 20110412
  Transmission Date: 20111010
  Serious: Yes (Hospitalization)
  Sender: FDA-Public Use
  Company Number: US-BAYER-201036996NA

PATIENT
  Age: 31 Year
  Sex: Female
  Weight: 56.7 kg

DRUGS (3)
  1. PERCOCET [Concomitant]
     Dosage: UNK
     Dates: start: 20081120
  2. YAZ [Suspect]
     Indication: CONTRACEPTION
     Dosage: UNK UNK, QD
     Dates: start: 20080201, end: 20081130
  3. ONE-A-DAY [VIT C,B12,D2,B3,B6,RETINOL,B2,B1 MONONITR] [Concomitant]
     Route: 048

REACTIONS (1)
  - DEEP VEIN THROMBOSIS [None]
